FAERS Safety Report 6441912-7 (Version None)
Quarter: 2009Q4

REPORT INFORMATION
  Report Type: 
  Country: None (occurrence: None)
  Receive Date: 20091116
  Receipt Date: 20091105
  Transmission Date: 20100525
  Serious: Yes (Hospitalization)
  Sender: FDA-Public Use
  Company Number: US-WYE-H12078709

PATIENT
  Sex: Male
  Weight: 72.06 kg

DRUGS (10)
  1. TORISEL [Suspect]
     Indication: NON-SMALL CELL LUNG CANCER
     Route: 042
     Dates: start: 20090807, end: 20090904
  2. FENTANYL-100 [Concomitant]
     Dosage: NOT PROVIDED
     Route: 065
  3. GABAPENTIN [Concomitant]
     Dosage: NOT PROVIDED
     Route: 065
  4. MINOCYCLINE [Concomitant]
     Dosage: NOT PROVIDED
     Route: 065
     Dates: start: 20090807, end: 20090821
  5. HYDROMORPHONE HYDROCHLORIDE [Concomitant]
     Dosage: NOT PROVIDED
     Route: 065
  6. METOCLOPRAMIDE [Concomitant]
     Dosage: NOT PROVIDED
     Route: 065
  7. LORAZEPAM [Concomitant]
     Dosage: NOT PROVIDED
     Route: 065
     Dates: start: 20090806
  8. ZOLPIDEM TARTRATE [Concomitant]
     Dosage: NOT PROVIDED
     Route: 065
     Dates: start: 20090731, end: 20090804
  9. ERLOTINIB [Suspect]
     Indication: NON-SMALL CELL LUNG CANCER
     Route: 048
     Dates: start: 20090731, end: 20090911
  10. PREDNISONE [Concomitant]
     Dosage: NOT PROVIDED
     Route: 065

REACTIONS (5)
  - NAUSEA [None]
  - PYREXIA [None]
  - URINARY TRACT INFECTION [None]
  - VISION BLURRED [None]
  - VOMITING [None]
